FAERS Safety Report 6337817-2 (Version None)
Quarter: 2009Q3

REPORT INFORMATION
  Report Type: 
  Country: None (occurrence: None)
  Receive Date: 20090902
  Receipt Date: 20090827
  Transmission Date: 20100115
  Serious: Yes (Hospitalization)
  Sender: FDA-Public Use
  Company Number: A0804762A

PATIENT
  Age: 38 Year
  Sex: Male

DRUGS (2)
  1. PARNATE [Suspect]
     Indication: DEPRESSION
     Route: 048
     Dates: start: 20050101
  2. UNSPECIFIED MEDICATION [Suspect]
     Indication: DEPRESSION

REACTIONS (3)
  - DRUG INEFFECTIVE [None]
  - DRUG INTERACTION [None]
  - INTENTIONAL DRUG MISUSE [None]
